FAERS Safety Report 11793596 (Version 1)
Quarter: 2015Q4

REPORT INFORMATION
  Report Type: Spontaneous
  Country: US (occurrence: None)
  Receive Date: 20151201
  Receipt Date: 20151201
  Transmission Date: 20160305
  Serious: No
  Sender: FDA-Public Use
  Company Number: None

PATIENT
  Age: 39 Year
  Sex: Female

DRUGS (3)
  1. MOBIC [Suspect]
     Active Substance: MELOXICAM
  2. ABILIFY [Concomitant]
     Active Substance: ARIPIPRAZOLE
  3. LITHIUM. [Suspect]
     Active Substance: LITHIUM

REACTIONS (4)
  - Disorientation [None]
  - Tremor [None]
  - Toxicity to various agents [None]
  - Confusional state [None]

NARRATIVE: CASE EVENT DATE: 20151028
